FAERS Safety Report 20965685 (Version 1)
Quarter: 2022Q2

REPORT INFORMATION
  Report Type: Spontaneous
  Country: US (occurrence: US)
  Receive Date: 20220616
  Receipt Date: 20220616
  Transmission Date: 20220720
  Serious: No
  Sender: FDA-Public Use
  Company Number: US-CELGENE-USA-20211106871

PATIENT
  Age: 73 Year
  Sex: Male

DRUGS (2)
  1. REVLIMID [Suspect]
     Active Substance: LENALIDOMIDE
     Indication: Plasma cell myeloma
     Dosage: 20 MILLIGRAM
     Route: 048
     Dates: start: 20211028
  2. REVLIMID [Suspect]
     Active Substance: LENALIDOMIDE
     Indication: Plasma cell myeloma
     Route: 048
     Dates: start: 20220120

REACTIONS (6)
  - Dehydration [Recovered/Resolved]
  - Diarrhoea [Unknown]
  - Constipation [Unknown]
  - Fatigue [Recovering/Resolving]
  - Somnolence [Recovering/Resolving]
  - Gingival bleeding [Recovering/Resolving]

NARRATIVE: CASE EVENT DATE: 20210101
